FAERS Safety Report 11199543 (Version 1)
Quarter: 2015Q2

REPORT INFORMATION
  Report Type: Spontaneous
  Country: US (occurrence: US)
  Receive Date: 20150618
  Receipt Date: 20150618
  Transmission Date: 20150821
  Serious: Yes (Hospitalization, Disabling, Other)
  Sender: FDA-Public Use
  Company Number: US-009507513-1203USA02915

PATIENT
  Sex: Female

DRUGS (2)
  1. FOSAMAX [Suspect]
     Active Substance: ALENDRONATE SODIUM
     Indication: BONE DENSITY DECREASED
     Dosage: 70 MG, UNK
     Route: 048
     Dates: start: 1993, end: 2005
  2. FORTEO [Suspect]
     Active Substance: TERIPARATIDE
     Indication: BONE DENSITY DECREASED
     Dosage: UNK
     Dates: start: 20040920, end: 20060925

REACTIONS (15)
  - Upper limb fracture [Unknown]
  - Bone disorder [Not Recovered/Not Resolved]
  - Femur fracture [Unknown]
  - Stress fracture [Not Recovered/Not Resolved]
  - Fall [Unknown]
  - Hip fracture [Unknown]
  - Renal stone removal [Unknown]
  - Foot operation [Unknown]
  - Rib fracture [Unknown]
  - Impaired healing [Unknown]
  - Foot fracture [Unknown]
  - Femur fracture [Unknown]
  - Retinal operation [Unknown]
  - Femur fracture [Not Recovered/Not Resolved]
  - Cataract [Unknown]

NARRATIVE: CASE EVENT DATE: 19931227
